FAERS Safety Report 4592140-1 (Version None)
Quarter: 2005Q1

REPORT INFORMATION
  Report Type: 
  Country: None (occurrence: None)
  Receive Date: 20050125
  Receipt Date: 20040816
  Transmission Date: 20050727
  Serious: No
  Sender: FDA-Public Use
  Company Number: USA040875699

PATIENT
  Age: 56 Year
  Sex: Female
  Weight: 80 kg

DRUGS (3)
  1. FORTEO [Suspect]
     Indication: OSTEOPOROSIS
     Dosage: 20 UG DAY
     Dates: start: 20040207, end: 20040803
  2. METHOTREXATE [Concomitant]
  3. CELEBREX [Concomitant]

REACTIONS (4)
  - ASTHENIA [None]
  - DYSKINESIA [None]
  - MYALGIA [None]
  - TENDONITIS [None]
